FAERS Safety Report 6681027-6 (Version None)
Quarter: 2010Q2

REPORT INFORMATION
  Report Type: 
  Country: None (occurrence: None)
  Receive Date: 20100414
  Receipt Date: 20100413
  Transmission Date: 20101027
  Serious: Yes (Hospitalization)
  Sender: FDA-Public Use
  Company Number: US-JNJFOC-20100401045

PATIENT
  Sex: Male
  Weight: 81 kg

DRUGS (9)
  1. PLACEBO [Suspect]
     Indication: HEPATITIS C
     Route: 042
  2. PEG-INTRON [Suspect]
     Indication: HEPATITIS C
     Route: 058
  3. REBETOL [Suspect]
     Indication: HEPATITIS C
     Route: 048
  4. TRAZODONE [Concomitant]
  5. PROMETHAZINE [Concomitant]
     Indication: VOMITING
     Dosage: 4-6 HOURS AS NEEDED
  6. PROMETHAZINE [Concomitant]
     Indication: NAUSEA
     Dosage: 4-6 HOURS AS NEEDED
  7. CYCLOBENZAPRINE HCL [Concomitant]
  8. ETODOLAC [Concomitant]
     Indication: PAIN
     Dosage: TWICE DAILY PRN
  9. PRILOSEC [Concomitant]
     Route: 048

REACTIONS (2)
  - DEHYDRATION [None]
  - HYPERKALAEMIA [None]
